FAERS Safety Report 13007440 (Version 1)
Quarter: 2016Q4

REPORT INFORMATION
  Report Type: Spontaneous
  Country: FR (occurrence: FR)
  Receive Date: 20161207
  Receipt Date: 20161207
  Transmission Date: 20170207
  Serious: Yes (Hospitalization, Other)
  Sender: FDA-Public Use
  Company Number: FR-ASTRAZENECA-2016SF27386

PATIENT
  Age: 43 Year
  Sex: Female

DRUGS (17)
  1. CACIT VITAMINE D3 [Concomitant]
     Active Substance: CALCIUM CARBONATE\CHOLECALCIFEROL
  2. SYMBICORT [Suspect]
     Active Substance: BUDESONIDE\FORMOTEROL FUMARATE DIHYDRATE
     Indication: ASTHMA
     Dosage: 160/4.5 UG
     Route: 055
  3. DIFFU K [Concomitant]
     Active Substance: POTASSIUM CHLORIDE
  4. CORTANCYL [Suspect]
     Active Substance: PREDNISONE
     Indication: RHEUMATOID ARTHRITIS
     Route: 048
     Dates: start: 201111
  5. SPECIAFOLDINE [Concomitant]
     Active Substance: FOLIC ACID
  6. FORADIL [Concomitant]
     Active Substance: FORMOTEROL FUMARATE
  7. GALVUS [Concomitant]
     Active Substance: VILDAGLIPTIN
  8. ENBREL [Concomitant]
     Active Substance: ETANERCEPT
  9. METFORMIN [Concomitant]
     Active Substance: METFORMIN HYDROCHLORIDE
  10. SEROPRAM [Concomitant]
     Active Substance: CITALOPRAM HYDROBROMIDE
  11. LAROXYL [Concomitant]
     Active Substance: AMITRIPTYLINE
  12. STILNOX [Concomitant]
     Active Substance: ZOLPIDEM TARTRATE
  13. TANGANIL [Concomitant]
     Active Substance: ACETYLLEUCINE
  14. ACTONEL [Concomitant]
     Active Substance: RISEDRONATE SODIUM
  15. INEXIUM [Concomitant]
     Active Substance: ESOMEPRAZOLE
  16. TRAMADOL BASE [Concomitant]
     Active Substance: TRAMADOL
  17. METHOTREXATE. [Concomitant]
     Active Substance: METHOTREXATE

REACTIONS (1)
  - Diabetes mellitus [Not Recovered/Not Resolved]

NARRATIVE: CASE EVENT DATE: 201604
